FAERS Safety Report 14581065 (Version 1)
Quarter: 2018Q1

REPORT INFORMATION
  Report Type: Spontaneous
  Country: US (occurrence: US)
  Receive Date: 20180228
  Receipt Date: 20180228
  Transmission Date: 20180509
  Serious: No
  Sender: FDA-Public Use
  Company Number: US-PFIZER INC-2018081493

PATIENT
  Age: 41 Year
  Sex: Female

DRUGS (1)
  1. IBRANCE [Suspect]
     Active Substance: PALBOCICLIB
     Indication: BREAST CANCER FEMALE
     Dosage: 1 DF, CYCLIC (1 CAPSULE DAILY FOR 3 WEEKS AND OFF FOR 1 WEEK EVERY 28 DAYS)
     Route: 048
     Dates: start: 201701

REACTIONS (1)
  - Alopecia [Unknown]
